FAERS Safety Report 24979673 (Version 1)
Quarter: 2025Q1

REPORT INFORMATION
  Report Type: Report from Study
  Country: US (occurrence: US)
  Receive Date: 20250218
  Receipt Date: 20250218
  Transmission Date: 20250409
  Serious: Yes (Other)
  Sender: RANBAXY
  Company Number: US-SUN PHARMACEUTICAL INDUSTRIES LTD-2025R1-494512

PATIENT
  Age: 19 Year
  Sex: Male

DRUGS (2)
  1. CAFFEINE [Suspect]
     Active Substance: CAFFEINE
     Indication: Product used for unknown indication
     Route: 065
  2. FLUBROMAZOLAM [Suspect]
     Active Substance: FLUBROMAZOLAM
     Indication: Product used for unknown indication
     Route: 065

REACTIONS (5)
  - Impaired driving ability [Unknown]
  - Toxicity to various agents [Unknown]
  - Balance disorder [Unknown]
  - Dysarthria [Unknown]
  - Sluggishness [Unknown]
